FAERS Safety Report 8539702-4 (Version None)
Quarter: 2012Q3

REPORT INFORMATION
  Report Type: 
  Country: None (occurrence: None)
  Receive Date: 20120726
  Receipt Date: 20111027
  Transmission Date: 20120928
  Serious: No
  Sender: FDA-Public Use
  Company Number: US-ASTRAZENECA-2010SE11689

PATIENT
  Age: 47 Year
  Sex: Male

DRUGS (1)
  1. SEROQUEL XR [Suspect]
     Route: 048

REACTIONS (12)
  - MALAISE [None]
  - EMOTIONAL DISORDER [None]
  - MOOD ALTERED [None]
  - EATING DISORDER [None]
  - DISORIENTATION [None]
  - DRUG DOSE OMISSION [None]
  - INSOMNIA [None]
  - TREMOR [None]
  - AMNESIA [None]
  - DRUG WITHDRAWAL SYNDROME [None]
  - PSYCHOMOTOR HYPERACTIVITY [None]
  - IMPATIENCE [None]
